FAERS Safety Report 13971519 (Version 1)
Quarter: 2017Q3

REPORT INFORMATION
  Report Type: Spontaneous
  Country: US (occurrence: US)
  Receive Date: 20170914
  Receipt Date: 20170914
  Transmission Date: 20171128
  Serious: No
  Sender: FDA-Public Use
  Company Number: US-LPDUSPRD-20160796

PATIENT
  Age: 58 Year
  Sex: Female

DRUGS (4)
  1. DIPHENHYDRAMINE HCL [Concomitant]
     Active Substance: DIPHENHYDRAMINE HYDROCHLORIDE
     Dosage: 25 MG
     Route: 042
     Dates: start: 20160908, end: 20160908
  2. ONDANSETRON INJECTION (4420-01) [Concomitant]
     Active Substance: ONDANSETRON
     Dosage: 8 MG
     Route: 042
     Dates: start: 20160908, end: 20160908
  3. INJECTAFER [Suspect]
     Active Substance: FERRIC CARBOXYMALTOSE
     Dosage: 750 MG IN 250 ML NS
     Route: 041
     Dates: start: 20160908, end: 20160908
  4. HYDROCORTISONE SOD SUCCINATE [Concomitant]
     Dosage: 100 MG
     Route: 042
     Dates: start: 20160908, end: 20160908

REACTIONS (5)
  - Extravasation [Recovered/Resolved]
  - Injection site pain [Unknown]
  - Skin discolouration [Recovering/Resolving]
  - Injection site swelling [Unknown]
  - Pain [Unknown]

NARRATIVE: CASE EVENT DATE: 201609
